FAERS Safety Report 6439758-9 (Version None)
Quarter: 2009Q4

REPORT INFORMATION
  Report Type: 
  Country: None (occurrence: None)
  Receive Date: 20091112
  Receipt Date: 20091112
  Transmission Date: 20100525
  Serious: Yes (Hospitalization)
  Sender: FDA-Public Use
  Company Number: None

PATIENT
  Sex: Male
  Weight: 13.3 kg

DRUGS (5)
  1. VINCRISTINE SULFATE [Suspect]
     Dosage: 2.7 MG
  2. PEG-L-ASPARIGINASE (PEGASPARGASE, ONCOSPAR) [Suspect]
     Dosage: 1550 IU
  3. CYTARABINE [Suspect]
     Dosage: 50 MG
  4. DEXAMETHASONE TAB [Suspect]
     Dosage: 60.8 MG
  5. METHOTREXATE [Suspect]
     Dosage: 10 MG

REACTIONS (11)
  - BRADYCARDIA [None]
  - CARDIO-RESPIRATORY ARREST [None]
  - DIARRHOEA [None]
  - HAEMATEMESIS [None]
  - HYPOPHAGIA [None]
  - METABOLIC ACIDOSIS [None]
  - PULSE ABSENT [None]
  - RESPIRATORY ACIDOSIS [None]
  - RESPIRATORY RATE INCREASED [None]
  - TACHYCARDIA [None]
  - VOMITING [None]
